FAERS Safety Report 7836837-6 (Version None)
Quarter: 2011Q4

REPORT INFORMATION
  Report Type: 
  Country: None (occurrence: None)
  Receive Date: 20111024
  Receipt Date: 20101207
  Transmission Date: 20120403
  Serious: No
  Sender: FDA-Public Use
  Company Number: US-ABBOTT-10P-163-0690547-00

PATIENT
  Sex: Female
  Weight: 61.29 kg

DRUGS (3)
  1. CELEXA [Concomitant]
     Indication: DEPRESSION
     Dosage: 20MG BREAKS TAB AT BEDTIME DAILY
  2. LUPRON DEPOT [Suspect]
     Indication: ENDOMETRIOSIS
     Dosage: MONTHLY, 3RD SHOT IN DEC 2010
     Route: 050
     Dates: start: 20101001
  3. XANAX [Concomitant]
     Indication: AGGRESSION
     Dosage: TAKES 1/2 TAB, 0.5 MG, AS NEEDED

REACTIONS (7)
  - NAUSEA [None]
  - HOT FLUSH [None]
  - HEART RATE INCREASED [None]
  - IRRITABILITY [None]
  - MENORRHAGIA [None]
  - DIZZINESS [None]
  - MIGRAINE [None]
